FAERS Safety Report 6346713-6 (Version None)
Quarter: 2009Q3

REPORT INFORMATION
  Report Type: 
  Country: None (occurrence: None)
  Receive Date: 20090904
  Receipt Date: 20090827
  Transmission Date: 20100115
  Serious: Yes (Hospitalization)
  Sender: FDA-Public Use
  Company Number: 2009AL005686

PATIENT
  Age: 72 Year
  Sex: Male

DRUGS (3)
  1. DILTIAZEM HYDROCHLORIDE [Suspect]
  2. TRIMETAZIDINE [Concomitant]
  3. SPIRIVA [Concomitant]

REACTIONS (7)
  - ABDOMINAL PAIN [None]
  - ARRHYTHMIA [None]
  - CHRONIC OBSTRUCTIVE PULMONARY DISEASE [None]
  - CONDITION AGGRAVATED [None]
  - GASTRIC ULCER [None]
  - MYOCARDIAL INFARCTION [None]
  - PERITONITIS [None]
